FAERS Safety Report 4366024-8 (Version None)
Quarter: 2004Q2

REPORT INFORMATION
  Report Type: 
  Country: None (occurrence: None)
  Receive Date: 20040527
  Receipt Date: 20040517
  Transmission Date: 20050107
  Serious: Yes (Other)
  Sender: FDA-Public Use
  Company Number: US-BRISTOL-MYERS SQUIBB COMPANY-12588455

PATIENT
  Age: 54 Year
  Sex: Male

DRUGS (3)
  1. ARIPIPRAZOLE [Suspect]
     Indication: PARANOIA
     Route: 048
  2. ARIPIPRAZOLE [Interacting]
     Indication: EXTRAPYRAMIDAL DISORDER
     Route: 048
  3. HALOPERIDOL DECANOATE [Interacting]
     Indication: PSYCHOTIC DISORDER
     Route: 030

REACTIONS (3)
  - AGITATION [None]
  - DRUG INTERACTION [None]
  - PARANOIA [None]
